FAERS Safety Report 13472900 (Version 2)
Quarter: 2017Q2

REPORT INFORMATION
  Report Type: Spontaneous
  Country: CZ (occurrence: CZ)
  Receive Date: 20170424
  Receipt Date: 20170522
  Transmission Date: 20170830
  Serious: Yes (Life-Threatening, Hospitalization)
  Sender: FDA-Public Use
  Company Number: CZ-PFIZER INC-2017175860

PATIENT
  Age: 55 Year
  Sex: Male

DRUGS (4)
  1. AGAPURIN [Concomitant]
  2. SOLU-MEDROL [Suspect]
     Active Substance: METHYLPREDNISOLONE SODIUM SUCCINATE
     Indication: TONGUE OEDEMA
     Dosage: 2X 62,5 MG/ML (OVERALL 125 MG)
     Route: 042
     Dates: start: 20170325, end: 20170325
  3. SOLU-MEDROL [Suspect]
     Active Substance: METHYLPREDNISOLONE SODIUM SUCCINATE
     Dosage: UNK
  4. PRESTANCE [Concomitant]
     Active Substance: AMLODIPINE BESYLATE\PERINDOPRIL ARGININE

REACTIONS (3)
  - Condition aggravated [Recovered/Resolved]
  - Oedema [Recovered/Resolved]
  - Tongue oedema [Recovered/Resolved]
